FAERS Safety Report 7345390-5 (Version None)
Quarter: 2011Q1

REPORT INFORMATION
  Report Type: 
  Country: None (occurrence: None)
  Receive Date: 20110310
  Receipt Date: 20110225
  Transmission Date: 20110831
  Serious: Yes (Hospitalization, Other)
  Sender: FDA-Public Use
  Company Number: US-CELGENEUS-163-21880-10081592

PATIENT
  Sex: Female
  Weight: 44.492 kg

DRUGS (34)
  1. VITAMIN D [Concomitant]
     Route: 065
  2. IMODIUM MULTI-SYMPTOM RELIEF [Concomitant]
     Route: 065
  3. PREDNSIONE [Concomitant]
     Dosage: 40-10MG
     Route: 065
  4. STOOL SOFTENERS [Concomitant]
     Indication: CONSTIPATION
     Route: 065
  5. OMEPRAZOLE [Concomitant]
     Route: 065
  6. MIRALAX [Concomitant]
     Indication: CONSTIPATION
     Route: 065
  7. REVLIMID [Suspect]
     Indication: MULTIPLE MYELOMA
     Dosage: 10 MILLIGRAM
     Route: 048
     Dates: start: 20100721
  8. IMIPRAMINE [Concomitant]
     Dosage: 25 MILLIGRAM
     Route: 065
  9. K-DUR [Concomitant]
     Route: 048
     Dates: start: 20101020, end: 20101120
  10. COMBIVENT [Concomitant]
     Dosage: 2 PUFF
     Route: 055
  11. ALBUTEROL [Concomitant]
     Route: 055
  12. FLEXERIL [Concomitant]
     Indication: MUSCLE SPASMS
     Route: 065
  13. FLAGYL [Concomitant]
     Dosage: 250 MILLIGRAM
     Route: 065
  14. DECADRON [Concomitant]
     Indication: MULTIPLE MYELOMA
     Dosage: 40 MILLIGRAM
     Route: 065
  15. FENTANYL [Concomitant]
     Indication: PAIN
     Dosage: 50 MICROGRAM
     Route: 062
     Dates: start: 20090101
  16. POTASSIUM [Concomitant]
     Route: 048
     Dates: start: 20101020, end: 20101120
  17. REVLIMID [Suspect]
     Dosage: 10 MILLIGRAM
     Route: 048
     Dates: start: 20101118
  18. LOVASTATIN [Concomitant]
     Indication: BLOOD PRESSURE
     Dosage: 20 MILLIGRAM
     Route: 065
  19. LASIX [Concomitant]
     Route: 048
     Dates: start: 20101020, end: 20101120
  20. AREDIA [Concomitant]
     Route: 065
  21. FLUIDS [Concomitant]
     Route: 051
  22. ASPIRIN [Concomitant]
     Route: 065
  23. MULTI-VITAMINS [Concomitant]
     Route: 065
  24. OXYCODONE HCL [Concomitant]
     Indication: PAIN
     Dosage: 5 MILLIGRAM
     Route: 065
  25. PROTAMINE SULFATE [Concomitant]
     Indication: MULTIPLE MYELOMA
     Dosage: 10 MILLIGRAM
     Route: 065
  26. OXYGEN [Concomitant]
     Route: 065
  27. MOXIFLOXACIN [Concomitant]
     Route: 065
  28. NICOTINE [Concomitant]
     Route: 062
  29. GABAPENTIN [Concomitant]
     Dosage: 1 DOSAGE FORMS
     Route: 065
  30. FORADIL [Concomitant]
     Dosage: 2 PUFF
     Route: 055
  31. CALCIUM CARBONATE [Concomitant]
     Route: 065
  32. TRAZODONE HCL [Concomitant]
     Route: 065
  33. COLACE [Concomitant]
     Route: 062
  34. VANCOMYCIN [Concomitant]
     Route: 065

REACTIONS (11)
  - HYPERLIPIDAEMIA [None]
  - LEUKOPENIA [None]
  - CARDIAC FAILURE CONGESTIVE [None]
  - HYPERTENSION [None]
  - HYPERCALCAEMIA [None]
  - GASTROOESOPHAGEAL REFLUX DISEASE [None]
  - CHRONIC OBSTRUCTIVE PULMONARY DISEASE [None]
  - RENAL FUNCTION TEST ABNORMAL [None]
  - BLOOD CREATININE INCREASED [None]
  - BACTERAEMIA [None]
  - ANAEMIA [None]
